FAERS Safety Report 5884900-1 (Version None)
Quarter: 2008Q3

REPORT INFORMATION
  Report Type: 
  Country: None (occurrence: None)
  Receive Date: 20080916
  Receipt Date: 20080904
  Transmission Date: 20090109
  Serious: Yes (Hospitalization)
  Sender: FDA-Public Use
  Company Number: CH-ROCHE-582492

PATIENT
  Sex: Female
  Weight: 70 kg

DRUGS (7)
  1. XELODA [Suspect]
     Route: 048
     Dates: start: 20080508, end: 20080521
  2. XELODA [Suspect]
     Route: 048
     Dates: start: 20080529, end: 20080601
  3. GEMZAR [Concomitant]
     Dates: start: 20080101
  4. CO-MEPRIL [Concomitant]
  5. LYRICA [Concomitant]
  6. HALCION [Concomitant]
  7. DALGAN [Concomitant]

REACTIONS (1)
  - ANGIOEDEMA [None]
